FAERS Safety Report 5311732-5 (Version None)
Quarter: 2007Q2

REPORT INFORMATION
  Report Type: 
  Country: None (occurrence: None)
  Receive Date: 20070430
  Receipt Date: 20070416
  Transmission Date: 20071010
  Serious: Yes (Other)
  Sender: FDA-Public Use
  Company Number: US-ROCHE-493022

PATIENT
  Age: 69 Year
  Sex: Male

DRUGS (3)
  1. XELODA [Suspect]
     Indication: DRUG USE FOR UNKNOWN INDICATION
     Route: 048
     Dates: start: 20070101
  2. LENTINAN [Concomitant]
  3. GREEN TEA EXTRACT [Concomitant]

REACTIONS (1)
  - THROMBOSIS [None]
